FAERS Safety Report 10245465 (Version 1)
Quarter: 2014Q2

REPORT INFORMATION
  Report Type: Spontaneous
  Country: CH (occurrence: CH)
  Receive Date: 20140618
  Receipt Date: 20140618
  Transmission Date: 20141212
  Serious: Yes (Other)
  Sender: FDA-Public Use
  Company Number: PHHY2014CH071867

PATIENT
  Age: 79 Year
  Sex: Female

DRUGS (2)
  1. AZATHIOPRINE [Suspect]
     Route: 048
  2. ALLOPURINOL [Interacting]

REACTIONS (4)
  - Sepsis [Unknown]
  - Agranulocytosis [Unknown]
  - Overdose [Unknown]
  - Drug interaction [Unknown]
